FAERS Safety Report 10171074 (Version 1)
Quarter: 2014Q2

REPORT INFORMATION
  Report Type: Spontaneous
  Country: US (occurrence: US)
  Receive Date: 20140514
  Receipt Date: 20140514
  Transmission Date: 20141212
  Serious: Yes (Other)
  Sender: FDA-Public Use
  Company Number: US-JNJFOC-20140501225

PATIENT
  Sex: Female
  Weight: 74.84 kg

DRUGS (1)
  1. ORTHO TRI-CYCLEN LO [Suspect]
     Indication: CONTRACEPTION
     Route: 048
     Dates: start: 2014, end: 201404

REACTIONS (2)
  - Premenstrual dysphoric disorder [Recovered/Resolved]
  - Nausea [Recovered/Resolved]
